FAERS Safety Report 8928050 (Version 1)
Quarter: 2012Q4

REPORT INFORMATION
  Report Type: Spontaneous
  Country: US (occurrence: None)
  Receive Date: 20121120
  Receipt Date: 20121120
  Transmission Date: 20130627
  Serious: Yes (Other)
  Sender: FDA-Public Use
  Company Number: KV201200221

PATIENT
  Age: 37 Year
  Sex: Female

DRUGS (2)
  1. MAKENA [Suspect]
     Indication: PREMATURE DELIVERY
     Route: 030
     Dates: start: 20120913, end: 201210
  2. PRENATAL VITAMINS: BIOTIN, MINERAL NOS, NICOTINIC ACID, RETINOL, TOCOPHEROL, VITAMIN B NOS, VITAMIN D NOS) [Concomitant]

REACTIONS (4)
  - Premature rupture of membranes [None]
  - Premature delivery [None]
  - Off label use [None]
  - Exposure during pregnancy [None]
